FAERS Safety Report 14717654 (Version 1)
Quarter: 2018Q2

REPORT INFORMATION
  Report Type: Spontaneous
  Country: US (occurrence: US)
  Receive Date: 20180404
  Receipt Date: 20180404
  Transmission Date: 20180711
  Serious: No
  Sender: FDA-Public Use
  Company Number: US-SA-2018SA020716

PATIENT
  Sex: Female

DRUGS (1)
  1. DUPIXENT [Suspect]
     Active Substance: DUPILUMAB
     Route: 058

REACTIONS (6)
  - Oedema peripheral [Unknown]
  - Swelling face [Unknown]
  - Hypersensitivity [Unknown]
  - Peripheral swelling [Unknown]
  - Chest discomfort [Unknown]
  - Injection site pain [Unknown]
